FAERS Safety Report 7815696-1 (Version None)
Quarter: 2011Q4

REPORT INFORMATION
  Report Type: 
  Country: None (occurrence: None)
  Receive Date: 20111014
  Receipt Date: 20111011
  Transmission Date: 20120403
  Serious: Yes (Life-Threatening, Other)
  Sender: FDA-Public Use
  Company Number: PHHY2011FR81994

PATIENT
  Sex: Female
  Weight: 60.6 kg

DRUGS (8)
  1. COLCHICINE [Suspect]
     Dosage: UNK UKN, PRN
     Dates: start: 20100501
  2. OXAZEPAM [Suspect]
     Dosage: UNK UKN, UNK
     Dates: start: 20100911
  3. METFORMIN HYDROCHLORIDE [Suspect]
     Dosage: 1 DF, UNK
     Dates: start: 20100911, end: 20101001
  4. RAMIPRIL [Suspect]
     Dosage: 5 MG, QD
     Dates: start: 19960101, end: 20101002
  5. NICARDIPINE HCL [Suspect]
     Dosage: 50 MG, BID
     Route: 048
     Dates: start: 19960101, end: 20101002
  6. SPIRONOLACTONE [Suspect]
     Dosage: 75 MG, UNK
  7. INDAPAMIDE [Suspect]
     Dosage: 2.5 MG, QD
     Dates: start: 19960101, end: 20101002
  8. ALLOPURINOL [Suspect]
     Dosage: 300 MG, QD
     Dates: start: 20100911, end: 20100925

REACTIONS (35)
  - PYREXIA [None]
  - CONDITION AGGRAVATED [None]
  - FUNGAL INFECTION [None]
  - AXONAL NEUROPATHY [None]
  - RASH ERYTHEMATOUS [None]
  - RENAL FAILURE CHRONIC [None]
  - CHOLESTASIS [None]
  - TOXIC EPIDERMAL NECROLYSIS [None]
  - CONJUNCTIVITIS [None]
  - MULTI-ORGAN FAILURE [None]
  - HYPERGLYCAEMIA [None]
  - HYPERTENSION [None]
  - PARAESTHESIA [None]
  - ORAL MUCOSA EROSION [None]
  - DYSPHAGIA [None]
  - PURPURA [None]
  - DYSAESTHESIA [None]
  - CEREBRAL HAEMORRHAGE [None]
  - PLANTAR ERYTHEMA [None]
  - FACE OEDEMA [None]
  - HICCUPS [None]
  - SKIN EXFOLIATION [None]
  - CHILLS [None]
  - HYPOREFLEXIA [None]
  - HIDRADENITIS [None]
  - MYOCLONUS [None]
  - TACHYCARDIA [None]
  - MENTAL DISORDER [None]
  - VIITH NERVE PARALYSIS [None]
  - PERIPHERAL SENSORY NEUROPATHY [None]
  - MUCOSAL EROSION [None]
  - NIKOLSKY'S SIGN [None]
  - TYPE 2 DIABETES MELLITUS [None]
  - BRACHIAL PLEXUS INJURY [None]
  - CLONUS [None]
